FAERS Safety Report 8315679-1 (Version None)
Quarter: 2012Q2

REPORT INFORMATION
  Report Type: 
  Country: None (occurrence: None)
  Receive Date: 20120426
  Receipt Date: 20120420
  Transmission Date: 20120825
  Serious: Yes (Hospitalization)
  Sender: FDA-Public Use
  Company Number: PHHY2012ES033889

PATIENT
  Age: 74 Year
  Sex: Male

DRUGS (6)
  1. ACETYLSALICYLIC ACID SRT [Interacting]
     Indication: CARDIOVASCULAR EVENT PROPHYLAXIS
     Dosage: 100 MG, DAILY
     Route: 048
     Dates: start: 20080101, end: 20111211
  2. VOLTAREN [Interacting]
     Indication: PAIN
     Dosage: 100 MG, DAILY
     Route: 048
     Dates: start: 20111208, end: 20111211
  3. METAMIZOLE [Interacting]
     Indication: PAIN
     Dosage: 1725 MG, DAILY
     Route: 048
     Dates: start: 20090101, end: 20111211
  4. ENALAPRIL MALEATE [Suspect]
     Indication: HYPERTENSION
     Dosage: 2.5 MG, MG
     Route: 048
     Dates: start: 20080101, end: 20111211
  5. SPIRONOLACTONE [Interacting]
     Indication: CARDIOMYOPATHY
     Dosage: 50 MG, UNK
     Dates: start: 20090101, end: 20111211
  6. NAPROXEN [Interacting]
     Indication: PAIN
     Dosage: UNK
     Dates: start: 20111205, end: 20111211

REACTIONS (4)
  - INCORRECT ROUTE OF DRUG ADMINISTRATION [None]
  - UPPER GASTROINTESTINAL HAEMORRHAGE [None]
  - RENAL FAILURE ACUTE [None]
  - DRUG INTERACTION [None]
